FAERS Safety Report 8337108-4 (Version None)
Quarter: 2012Q2

REPORT INFORMATION
  Report Type: 
  Country: None (occurrence: None)
  Receive Date: 20120504
  Receipt Date: 20120502
  Transmission Date: 20120825
  Serious: Yes (Other)
  Sender: FDA-Public Use
  Company Number: PHHY2012BR033982

PATIENT
  Sex: Male
  Weight: 70 kg

DRUGS (1)
  1. EXFORGE [Suspect]
     Indication: HYPERTENSION
     Dosage: 1 TABLET (80/5 MG) A DAY
     Route: 048
     Dates: end: 20120401

REACTIONS (6)
  - MALAISE [None]
  - VISION BLURRED [None]
  - HEAD DISCOMFORT [None]
  - SYNCOPE [None]
  - DIZZINESS [None]
  - PAIN [None]
